FAERS Safety Report 7400733-9 (Version None)
Quarter: 2011Q2

REPORT INFORMATION
  Report Type: 
  Country: None (occurrence: None)
  Receive Date: 20110407
  Receipt Date: 20110107
  Transmission Date: 20111010
  Serious: Yes (Hospitalization)
  Sender: FDA-Public Use
  Company Number: A0907054A

PATIENT
  Age: 50 Year
  Sex: Male

DRUGS (2)
  1. AVANDAMET [Suspect]
     Indication: DIABETES MELLITUS
     Route: 048
     Dates: start: 20040202, end: 20071003
  2. AVANDIA [Suspect]
     Route: 048
     Dates: start: 20030612, end: 20060725

REACTIONS (2)
  - ARTERIOSCLEROSIS [None]
  - CORONARY ARTERY BYPASS [None]
